FAERS Safety Report 14235531 (Version 1)
Quarter: 2017Q4

REPORT INFORMATION
  Report Type: Report from Study
  Country: US (occurrence: US)
  Receive Date: 20171129
  Receipt Date: 20171129
  Transmission Date: 20180321
  Serious: Yes (Hospitalization)
  Sender: FDA-Public Use
  Company Number: US-GILEAD-2017-0306342

PATIENT
  Age: 18 Year
  Sex: Female

DRUGS (3)
  1. VANCOMYCIN [Suspect]
     Active Substance: VANCOMYCIN
     Indication: PRODUCT USED FOR UNKNOWN INDICATION
     Dosage: UNK
     Route: 065
  2. BENADRYL                           /00945501/ [Concomitant]
     Active Substance: ACRIVASTINE
     Dosage: UNK
  3. AZTREONAM LYSINE [Suspect]
     Active Substance: AZTREONAM LYSINE
     Indication: CYSTIC FIBROSIS LUNG
     Dosage: 75 MG, UNK
     Route: 055

REACTIONS (4)
  - Unevaluable event [Unknown]
  - Angiopathy [Unknown]
  - Laboratory test abnormal [Unknown]
  - Staphylococcal infection [Unknown]
